FAERS Safety Report 5642329-5 (Version None)
Quarter: 2008Q1

REPORT INFORMATION
  Report Type: 
  Country: None (occurrence: None)
  Receive Date: 20080228
  Receipt Date: 20080221
  Transmission Date: 20080703
  Serious: Yes (Hospitalization, Other)
  Sender: FDA-Public Use
  Company Number: PHFR2008GB00971

PATIENT
  Age: 40 Year
  Sex: Male

DRUGS (5)
  1. AMOXICILLIN [Concomitant]
     Indication: SEPSIS
     Dosage: 500 MG, TID
     Route: 048
     Dates: start: 20080128
  2. FERROUS FUMARATE [Concomitant]
     Dosage: 210 MG, TID
     Route: 048
     Dates: start: 20080204
  3. LACTULOSE [Concomitant]
     Dosage: 10 ML, BID
     Route: 048
     Dates: start: 20080204
  4. METRONIDAZOLE HCL [Concomitant]
     Dosage: 400 MG, TID
     Route: 048
     Dates: start: 20080128
  5. CLOZAPINE [Suspect]
     Indication: SCHIZOPHRENIA
     Route: 048
     Dates: start: 20030101

REACTIONS (3)
  - PORTAL HYPERTENSION [None]
  - PORTAL VEIN THROMBOSIS [None]
  - SPLENOMEGALY [None]
